FAERS Safety Report 9495559 (Version 1)
Quarter: 2013Q3

REPORT INFORMATION
  Report Type: Spontaneous
  Country: US (occurrence: US)
  Receive Date: 20130903
  Receipt Date: 20130903
  Transmission Date: 20140515
  Serious: Yes (Hospitalization, Other)
  Sender: FDA-Public Use
  Company Number: US-TEVA-429182USA

PATIENT
  Age: 74 Year
  Sex: Female

DRUGS (14)
  1. RISPERIDONE [Suspect]
     Dates: end: 2013
  2. LAMOTRIGINE [Suspect]
     Dates: end: 2013
  3. THYROID [Suspect]
     Dosage: 90 MILLIGRAM DAILY;
     Dates: start: 201305
  4. THYROID [Suspect]
     Dosage: 120 MILLIGRAM DAILY;
  5. SIMVASTATIN [Concomitant]
  6. ESTRADIOL [Concomitant]
  7. CLONAZEPAM [Concomitant]
     Indication: ANXIETY
  8. DULOXETINE HYDROCHLORIDE [Concomitant]
  9. METFORMIN [Concomitant]
     Indication: DIABETES MELLITUS
  10. TEMAZEPAM [Concomitant]
     Indication: INSOMNIA
  11. GLIBENCLAMIDE [Concomitant]
     Indication: DIABETES MELLITUS
  12. SINEMET [Concomitant]
  13. INTEGRA [Concomitant]
  14. OLMESARTAN MEDOXOMIL [Concomitant]

REACTIONS (4)
  - Parkinson^s disease [Not Recovered/Not Resolved]
  - Tremor [Not Recovered/Not Resolved]
  - Depressed mood [Unknown]
  - Somnolence [Unknown]
